FAERS Safety Report 5701148-1 (Version None)
Quarter: 2008Q2

REPORT INFORMATION
  Report Type: 
  Country: None (occurrence: None)
  Receive Date: 20080410
  Receipt Date: 20080328
  Transmission Date: 20081010
  Serious: Yes (Death, Hospitalization)
  Sender: FDA-Public Use
  Company Number: US-AMGEN-QUU271861

PATIENT
  Sex: Female

DRUGS (2)
  1. ENBREL [Suspect]
     Indication: RHEUMATOID ARTHRITIS
     Dates: start: 20030301, end: 20070101
  2. CORTICOSTEROIDS [Concomitant]
     Dates: start: 19950101

REACTIONS (7)
  - CARDIAC FAILURE [None]
  - DEATH [None]
  - DYSPNOEA [None]
  - GASTROINTESTINAL INFECTION [None]
  - INFECTION [None]
  - RENAL FAILURE [None]
  - RESPIRATORY FAILURE [None]
